FAERS Safety Report 9654464 (Version 1)
Quarter: 2013Q4

REPORT INFORMATION
  Report Type: Spontaneous
  Country: NL (occurrence: None)
  Receive Date: 20131028
  Receipt Date: 20131028
  Transmission Date: 20140711
  Serious: Yes (Hospitalization)
  Sender: FDA-Public Use
  Company Number: 2013AP009236

PATIENT
  Age: 41 Year
  Sex: Male

DRUGS (2)
  1. CARBAMAZEPINE (CARBAMAZEPINE) [Suspect]
     Indication: EPILEPSY
     Dosage: 400 MG; 5XD
  2. AMIODARONE (AMIODARONE) [Suspect]
     Indication: VENTRICULAR FIBRILLATION
     Route: 042

REACTIONS (4)
  - Toxicity to various agents [None]
  - Coma [None]
  - Drug interaction [None]
  - Ventricular fibrillation [None]
